FAERS Safety Report 16645118 (Version 1)
Quarter: 2019Q3

REPORT INFORMATION
  Report Type: Spontaneous
  Country: HR (occurrence: HR)
  Receive Date: 20190729
  Receipt Date: 20190729
  Transmission Date: 20191004
  Serious: Yes (Other)
  Sender: FDA-Public Use
  Company Number: HR-PFIZER INC-2019318712

PATIENT
  Age: 12 Year
  Sex: Female
  Weight: 64 kg

DRUGS (3)
  1. MISAR [ALPRAZOLAM] [Suspect]
     Active Substance: ALPRAZOLAM
     Dosage: 7.5 MG, UNK, (0.25 MG X 30)
     Route: 048
     Dates: start: 20190531, end: 20190531
  2. NALGESIN FORTE [Suspect]
     Active Substance: NAPROXEN SODIUM
     Dosage: 5500 MG, UNK, (550 MG X 10)
     Route: 048
     Dates: start: 20190531, end: 20190531
  3. ZOLOFT [Suspect]
     Active Substance: SERTRALINE HYDROCHLORIDE
     Dosage: 1400 MG, UNK, (50 MG X 28)
     Route: 048
     Dates: start: 20190531, end: 20190531

REACTIONS (2)
  - Intentional overdose [Unknown]
  - Suicide attempt [Unknown]

NARRATIVE: CASE EVENT DATE: 20190531
